FAERS Safety Report 5192637-X (Version None)
Quarter: 2006Q4

REPORT INFORMATION
  Report Type: 
  Country: None (occurrence: None)
  Receive Date: 20061228
  Receipt Date: 20061213
  Transmission Date: 20070319
  Serious: Yes (Death)
  Sender: FDA-Public Use
  Company Number: ES-BAYER-200616321GDS

PATIENT
  Age: 59 Year
  Sex: Male

DRUGS (9)
  1. SORAFENIB [Suspect]
     Indication: RENAL CELL CARCINOMA STAGE UNSPECIFIED
     Dosage: TOTAL DAILY DOSE: 800 MG
     Route: 048
     Dates: start: 20060927, end: 20061103
  2. MORFIN [Concomitant]
     Indication: PAIN
     Route: 048
     Dates: start: 20061103, end: 20061106
  3. METAMIZOL [Concomitant]
     Indication: PAIN
     Route: 058
     Dates: start: 20061103, end: 20061106
  4. DURAGESIC-100 [Concomitant]
     Indication: PAIN
     Route: 062
     Dates: end: 20061106
  5. IBUPROFEN [Concomitant]
     Indication: INFLAMMATION
     Route: 048
     Dates: end: 20061106
  6. FORTECORTIN [Concomitant]
     Indication: INFLAMMATION
     Route: 048
     Dates: end: 20061106
  7. OMEPRAZOLE [Concomitant]
     Indication: PROPHYLAXIS AGAINST GASTROINTESTINAL ULCER
     Route: 048
     Dates: end: 20061106
  8. SEVREDOL [Concomitant]
     Indication: PAIN
     Route: 048
     Dates: end: 20061106
  9. SEGURIL [Concomitant]
     Indication: OEDEMA
     Route: 048
     Dates: end: 20061106

REACTIONS (1)
  - RESPIRATORY FAILURE [None]
